FAERS Safety Report 5700427-1 (Version None)
Quarter: 2008Q2

REPORT INFORMATION
  Report Type: 
  Country: None (occurrence: None)
  Receive Date: 20080407
  Receipt Date: 20080321
  Transmission Date: 20081010
  Serious: No
  Sender: FDA-Public Use
  Company Number: 002#2#2008-00137

PATIENT
  Age: 52 Year
  Sex: Female
  Weight: 59.8748 kg

DRUGS (6)
  1. NEUPRO [Suspect]
     Indication: PARKINSON'S DISEASE
     Dosage: 4MG/24H,1 IN 1 D,TRANSDERMAL,  2MG/24H,1 IN 1 D,TRANSDERMAL
     Route: 062
     Dates: start: 20070901, end: 20070907
  2. NEUPRO [Suspect]
     Indication: PARKINSON'S DISEASE
     Dosage: 4MG/24H,1 IN 1 D,TRANSDERMAL,  2MG/24H,1 IN 1 D,TRANSDERMAL
     Route: 062
     Dates: start: 20070908
  3. SINEMET REG [Concomitant]
  4. SINEMET TIME RELEASE [Concomitant]
  5. COMTAN [Concomitant]
  6. SYNTHROID [Concomitant]

REACTIONS (1)
  - DRUG INEFFECTIVE [None]
